FAERS Safety Report 7328730-2 (Version None)
Quarter: 2011Q1

REPORT INFORMATION
  Report Type: 
  Country: None (occurrence: None)
  Receive Date: 20110225
  Receipt Date: 20110225
  Transmission Date: 20110831
  Serious: Yes (Hospitalization)
  Sender: FDA-Public Use
  Company Number: None

PATIENT
  Age: 67 Year
  Sex: Female
  Weight: 62.5964 kg

DRUGS (4)
  1. PREDNISONE [Suspect]
     Indication: CHRONIC OBSTRUCTIVE PULMONARY DISEASE
     Dosage: PO
     Route: 048
     Dates: start: 20110115, end: 20110121
  2. PREDNISONE [Suspect]
     Indication: BRONCHITIS
     Dosage: PO
     Route: 048
     Dates: start: 20110115, end: 20110121
  3. LEVOFLOXACIN [Suspect]
     Indication: CHRONIC OBSTRUCTIVE PULMONARY DISEASE
     Dosage: PO
     Route: 048
     Dates: start: 20110115, end: 20110120
  4. LEVOFLOXACIN [Suspect]
     Indication: BRONCHITIS
     Dosage: PO
     Route: 048
     Dates: start: 20110115, end: 20110120

REACTIONS (6)
  - PAIN IN EXTREMITY [None]
  - FALL [None]
  - ASTHENIA [None]
  - DRUG INTERACTION [None]
  - GAIT DISTURBANCE [None]
  - TENDON RUPTURE [None]
